FAERS Safety Report 16285397 (Version 1)
Quarter: 2019Q2

REPORT INFORMATION
  Report Type: Spontaneous
  Country: US (occurrence: US)
  Receive Date: 20190506
  Receipt Date: 20190506
  Transmission Date: 20190711
  Serious: Yes (Disabling)
  Sender: FDA-Public Use
  Company Number: None

PATIENT
  Age: 71 Year
  Sex: Male
  Weight: 77.85 kg

DRUGS (3)
  1. LISINOPRIL/HCTZ [Concomitant]
     Active Substance: HYDROCHLOROTHIAZIDE\LISINOPRIL
  2. PRAVASTATIN, FROM VA FACILITY IN PALO ALTO, CA [Suspect]
     Active Substance: PRAVASTATIN
     Indication: HYPERLIPIDAEMIA
     Dosage: ?          QUANTITY:1 TABLET(S);?
     Route: 048
     Dates: start: 20180406, end: 20180416
  3. ALEVE [Concomitant]
     Active Substance: NAPROXEN SODIUM

REACTIONS (14)
  - Muscle spasms [None]
  - Asthenia [None]
  - Musculoskeletal stiffness [None]
  - Dysphonia [None]
  - Burning sensation [None]
  - Pain [None]
  - Fatigue [None]
  - Quality of life decreased [None]
  - Eye pain [None]
  - Cognitive disorder [None]
  - Impaired driving ability [None]
  - Depressed level of consciousness [None]
  - Peripheral swelling [None]
  - Myopathy [None]

NARRATIVE: CASE EVENT DATE: 20180406
